FAERS Safety Report 4367148-1 (Version None)
Quarter: 2004Q2

REPORT INFORMATION
  Report Type: 
  Country: None (occurrence: None)
  Receive Date: 20040528
  Receipt Date: 20040511
  Transmission Date: 20050107
  Serious: Yes (Other)
  Sender: FDA-Public Use
  Company Number: GB-BRISTOL-MYERS SQUIBB COMPANY-12585360

PATIENT
  Age: 29 Year
  Sex: Male
  Weight: 52 kg

DRUGS (13)
  1. REYATAZ [Suspect]
     Indication: HIV INFECTION
     Route: 048
     Dates: start: 20040210, end: 20040401
  2. VIDEX [Suspect]
     Indication: HIV INFECTION
     Route: 048
     Dates: start: 20040210, end: 20040401
  3. FTC [Concomitant]
  4. ACYCLOVIR [Concomitant]
     Indication: PROPHYLAXIS
     Route: 048
  5. LOPERAMIDE HCL [Concomitant]
     Indication: DIARRHOEA
     Route: 048
  6. VITAMIN D [Concomitant]
  7. CALCIUM [Concomitant]
  8. VITAMIN SUPPLEMENT [Concomitant]
  9. CO-TRIMOXAZOLE [Concomitant]
     Indication: PROPHYLAXIS
     Route: 048
  10. RITONAVIR [Concomitant]
     Indication: HIV INFECTION
     Route: 048
     Dates: start: 20040210, end: 20040401
  11. LAMIVUDINE [Concomitant]
     Indication: HIV INFECTION
     Route: 048
     Dates: start: 20040210, end: 20040401
  12. CALCICHEW [Concomitant]
     Indication: DIARRHOEA
     Route: 048
  13. KAPAKE [Concomitant]
     Indication: PAIN
     Route: 048

REACTIONS (1)
  - BLOOD ALKALINE PHOSPHATASE INCREASED [None]
